FAERS Safety Report 8676537 (Version 2)
Quarter: 2013Q4

REPORT INFORMATION
  Report Type: Spontaneous
  Country: DE (occurrence: DE)
  Receive Date: 20120720
  Receipt Date: 20131031
  Transmission Date: 20140711
  Serious: Yes (Hospitalization, Other)
  Sender: FDA-Public Use
  Company Number: DE-MSD-1205DEU00059

PATIENT
  Age: 61 Year
  Sex: Male
  Weight: 100 kg

DRUGS (2)
  1. VELMETIA [Suspect]
     Indication: TYPE 2 DIABETES MELLITUS
     Dosage: 1000MG/50
     Route: 048
     Dates: start: 20110202
  2. AMILORID COMP [Suspect]

REACTIONS (8)
  - Somnolence [Recovered/Resolved]
  - Hypertensive crisis [Unknown]
  - Pyrexia [Unknown]
  - Dyspnoea [Unknown]
  - Hypertensive nephropathy [Unknown]
  - Diabetic nephropathy [Unknown]
  - Weight increased [Unknown]
  - Hyponatraemia [Unknown]
